FAERS Safety Report 8942949 (Version 2)
Quarter: 2013Q1

REPORT INFORMATION
  Report Type: Report from Study
  Country: DE (occurrence: DE)
  Receive Date: 20121204
  Receipt Date: 20130220
  Transmission Date: 20140127
  Serious: Yes (Hospitalization, Other)
  Sender: FDA-Public Use
  Company Number: DE-BIOGENIDEC-2012BI056118

PATIENT
  Age: 53 Year
  Sex: Female

DRUGS (3)
  1. TYSABRI [Suspect]
     Indication: RELAPSING-REMITTING MULTIPLE SCLEROSIS
     Route: 042
     Dates: start: 20120125, end: 20120830
  2. LEVADOPA [Concomitant]
     Indication: TREMOR
     Dates: start: 20120107
  3. L-THYROX [Concomitant]
     Indication: HYPOTHYROIDISM
     Dates: start: 20080101

REACTIONS (5)
  - Post procedural fistula [Recovered/Resolved]
  - Postoperative wound infection [Recovered/Resolved]
  - Osteomyelitis acute [Recovered/Resolved]
  - Abscess [Recovered/Resolved]
  - Humerus fracture [Recovered/Resolved]
